FAERS Safety Report 15787486 (Version 1)
Quarter: 2019Q1

REPORT INFORMATION
  Report Type: Spontaneous
  Country: US (occurrence: US)
  Receive Date: 20190103
  Receipt Date: 20190103
  Transmission Date: 20190417
  Serious: Yes (Other)
  Sender: FDA-Public Use
  Company Number: US-BAUSCH-BL-2018-036253

PATIENT
  Age: 70 Year
  Sex: Male

DRUGS (9)
  1. DORZOLAMIDE, TIMOLOL [Suspect]
     Active Substance: DORZOLAMIDE\TIMOLOL
     Indication: INTRAOCULAR PRESSURE INCREASED
     Route: 065
  2. DORZOLAMIDE, TIMOLOL [Suspect]
     Active Substance: DORZOLAMIDE\TIMOLOL
     Dosage: RESTARTED (5 WEEKS LATER)
     Route: 065
  3. LATANOPROST. [Suspect]
     Active Substance: LATANOPROST
     Dosage: RESTARTED (5 WEEKS LATER)
     Route: 065
  4. BRIMONIDINE [Suspect]
     Active Substance: BRIMONIDINE TARTRATE
     Dosage: RESTARTED AGAIN
     Route: 065
  5. BRIMONIDINE [Suspect]
     Active Substance: BRIMONIDINE TARTRATE
     Dosage: RESTARTED (5 WEEKS LATER)
     Route: 065
  6. DORZOLAMIDE, TIMOLOL [Suspect]
     Active Substance: DORZOLAMIDE\TIMOLOL
     Dosage: RESTARTED AGAIN
     Route: 065
  7. BRIMONIDINE [Suspect]
     Active Substance: BRIMONIDINE TARTRATE
     Indication: INTRAOCULAR PRESSURE INCREASED
     Route: 065
  8. LATANOPROST. [Suspect]
     Active Substance: LATANOPROST
     Indication: INTRAOCULAR PRESSURE INCREASED
     Route: 065
  9. LATANOPROST. [Suspect]
     Active Substance: LATANOPROST
     Dosage: RESTARTED 4 MONTHS
     Route: 065

REACTIONS (1)
  - Hypotony of eye [Recovered/Resolved]
